FAERS Safety Report 9356709 (Version 3)
Quarter: 2013Q3

REPORT INFORMATION
  Report Type: Report from Study
  Country: DE (occurrence: DE)
  Receive Date: 20130619
  Receipt Date: 20130906
  Transmission Date: 20140515
  Serious: Yes (Hospitalization)
  Sender: FDA-Public Use
  Company Number: PHHY2013DE061305

PATIENT
  Sex: 0

DRUGS (6)
  1. TACROLIMUS [Suspect]
     Indication: RENAL TRANSPLANT
     Dosage: 3.5 MG, [2-0-1.5]
     Dates: start: 20130325
  2. MYFORTIC [Suspect]
     Indication: RENAL TRANSPLANT
     Dosage: 720 MG, BID
     Dates: start: 20130325
  3. PREDNISON [Concomitant]
     Indication: RENAL TRANSPLANT
     Dosage: 10 MG, UNK
     Dates: start: 20130327
  4. CARMEN [Concomitant]
     Indication: HYPERTENSION
     Dosage: UNK
     Dates: start: 20130521
  5. COTRIM FORTE [Concomitant]
     Indication: PROPHYLAXIS
     Dosage: UNK
     Dates: start: 20130328
  6. CONCOR [Concomitant]
     Indication: HYPERTENSION
     Dosage: UNK
     Dates: start: 20110119

REACTIONS (3)
  - Urinary tract infection pseudomonal [Recovered/Resolved]
  - Cerebrovascular accident [Recovered/Resolved]
  - Orchitis [Recovered/Resolved]
